FAERS Safety Report 8976648 (Version 1)
Quarter: 2012Q4

REPORT INFORMATION
  Report Type: 
  Country: US (occurrence: US)
  Receive Date: 20121220
  Receipt Date: 20121220
  Transmission Date: 20130627
  Serious: Yes (Hospitalization)
  Sender: FDA-Public Use
  Company Number: US-ELI_LILLY_AND_COMPANY-US201212003388

PATIENT
  Age: 81 Year
  Sex: Male

DRUGS (2)
  1. FORTEO [Suspect]
     Indication: FEMUR FRACTURE
     Dosage: 20 ug, qd
     Dates: start: 20120803
  2. FORTEO [Suspect]
     Dosage: 20 ug, qd

REACTIONS (8)
  - Renal failure [Unknown]
  - Viral infection [Not Recovered/Not Resolved]
  - Vomiting [Unknown]
  - Diarrhoea [Unknown]
  - Bronchitis [Unknown]
  - Asthenia [Unknown]
  - Malaise [Unknown]
  - Off label use [Unknown]
